FAERS Safety Report 5571152-5 (Version None)
Quarter: 2007Q4

REPORT INFORMATION
  Report Type: 
  Country: None (occurrence: None)
  Receive Date: 20071221
  Receipt Date: 20061121
  Transmission Date: 20080405
  Serious: No
  Sender: FDA-Public Use
  Company Number: A0628352A

PATIENT
  Age: 71 Year
  Sex: Male

DRUGS (2)
  1. FLUTICASONE PROPIONATE [Suspect]
     Route: 045
     Dates: start: 20061105
  2. NO CONCURRENT MEDICATIONS [Concomitant]

REACTIONS (1)
  - EPISTAXIS [None]
